FAERS Safety Report 10207704 (Version 2)
Quarter: 2014Q2

REPORT INFORMATION
  Report Type: Spontaneous
  Country: US (occurrence: US)
  Receive Date: 20140530
  Receipt Date: 20140620
  Transmission Date: 20141212
  Serious: Yes (Death, Hospitalization, Other)
  Sender: FDA-Public Use
  Company Number: US-B.I. PHARMACEUTICALS,INC./RIDGEFIELD-2014-BI-24052BP

PATIENT
  Sex: Female

DRUGS (6)
  1. SPIRIVA [Suspect]
     Indication: CHRONIC OBSTRUCTIVE PULMONARY DISEASE
     Route: 055
     Dates: start: 201310
  2. ADVAIR [Concomitant]
     Dosage: FORMULATION: INHALATION AEROSOL
     Route: 055
  3. ASPIRIN [Concomitant]
     Route: 048
  4. LOPRESSOR [Concomitant]
     Route: 048
  5. PRAVASTATIN [Concomitant]
     Route: 048
  6. PAROXETINE [Concomitant]
     Route: 048

REACTIONS (7)
  - Pneumonia [Fatal]
  - Septic shock [Fatal]
  - Lung carcinoma cell type unspecified stage IV [Fatal]
  - Metastases to pancreas [Fatal]
  - Metastases to oesophagus [Fatal]
  - Metastases to central nervous system [Fatal]
  - Weight decreased [Unknown]
